FAERS Safety Report 24602903 (Version 1)
Quarter: 2024Q4

REPORT INFORMATION
  Report Type: Spontaneous
  Country: US (occurrence: None)
  Receive Date: 20241108
  Receipt Date: 20241108
  Transmission Date: 20250115
  Serious: No
  Sender: Public
  Company Number: None

PATIENT
  Age: 43 Year
  Sex: Male

DRUGS (1)
  1. TOPIRAMATE [Suspect]
     Active Substance: TOPIRAMATE
     Indication: Migraine
     Dosage: 25 MG TWICE A DAY ORAL
     Route: 048
     Dates: start: 20240626

REACTIONS (1)
  - Glaucoma [None]

NARRATIVE: CASE EVENT DATE: 20240723
